FAERS Safety Report 7850765-1 (Version None)
Quarter: 2011Q4

REPORT INFORMATION
  Report Type: 
  Country: None (occurrence: None)
  Receive Date: 20111025
  Receipt Date: 20111007
  Transmission Date: 20120403
  Serious: Yes (Other)
  Sender: FDA-Public Use
  Company Number: TUK2011A00166

PATIENT
  Age: 74 Year
  Sex: Male

DRUGS (10)
  1. PIOGLITAZONE HYDROCHLORIDE [Suspect]
     Indication: DIABETES MELLITUS
     Dosage: (15 MG) ORAL
     Route: 048
     Dates: start: 20100930, end: 20110906
  2. ASPIRIN [Concomitant]
  3. FUROSEMIDE [Concomitant]
  4. RAMIPRIL [Concomitant]
  5. METFORMIN HCL [Concomitant]
  6. TIOTROPIUM BROMIDE (TIOTROPIUM BROMIDE) [Concomitant]
  7. SYMBICORT [Concomitant]
  8. VENTOLIN [Concomitant]
  9. GLIPIZIDE [Concomitant]
  10. MUCODYNE (CARBOCISTEINE) [Concomitant]

REACTIONS (1)
  - BLADDER CANCER [None]
